FAERS Safety Report 12615033 (Version 1)
Quarter: 2016Q3

REPORT INFORMATION
  Report Type: Spontaneous
  Country: US (occurrence: US)
  Receive Date: 20160802
  Receipt Date: 20160802
  Transmission Date: 20161109
  Serious: No
  Sender: FDA-Public Use
  Company Number: US-PERRIGO-16US000067

PATIENT
  Age: 50 Year
  Sex: Male
  Weight: 108.84 kg

DRUGS (4)
  1. NASAL PREPARATIONS [Concomitant]
     Active Substance: UNSPECIFIED INGREDIENT
     Indication: UPPER-AIRWAY COUGH SYNDROME
     Dosage: UNK
     Route: 045
     Dates: start: 201511
  2. WELLBUTRIN [Concomitant]
     Active Substance: BUPROPION HYDROCHLORIDE
     Indication: DEPRESSION
     Dosage: UNK
     Route: 048
  3. MINOXIDIL. [Suspect]
     Active Substance: MINOXIDIL
     Indication: ALOPECIA
     Dosage: 1 ML, BID
     Route: 061
     Dates: start: 201506, end: 20160101
  4. HEAD AND SHOULDERS [Suspect]
     Active Substance: PYRITHIONE ZINC
     Indication: DANDRUFF
     Dosage: UNKNOWN, UNKNOWN
     Route: 061
     Dates: start: 201512, end: 20160101

REACTIONS (5)
  - Drug ineffective [None]
  - Application site erythema [Unknown]
  - Dandruff [Unknown]
  - Application site irritation [Unknown]
  - Drug administered at inappropriate site [Unknown]

NARRATIVE: CASE EVENT DATE: 201506
